FAERS Safety Report 5881634-4 (Version None)
Quarter: 2008Q3

REPORT INFORMATION
  Report Type: 
  Country: None (occurrence: None)
  Receive Date: 20080912
  Receipt Date: 20080708
  Transmission Date: 20090109
  Serious: No
  Sender: FDA-Public Use
  Company Number: US-ABBOTT-08P-163-0461337-00

PATIENT
  Sex: Male
  Weight: 97.72 kg

DRUGS (5)
  1. HUMIRA [Suspect]
     Indication: RHEUMATOID ARTHRITIS
     Route: 058
  2. FOLIC ACID [Concomitant]
     Indication: ARTHRITIS
     Route: 048
     Dates: start: 20050101
  3. PREDNISOLONE SODIUM PHOSPHATE [Concomitant]
     Indication: ARTHRITIS
     Route: 048
     Dates: start: 20050101
  4. METHOTREXATE [Concomitant]
     Indication: ARTHRITIS
     Route: 030
     Dates: start: 20050101
  5. DIOVAN WITH HYDROCHLORITHIAZIDE [Concomitant]
     Indication: HYPERTENSION
     Dosage: 80/12.5MG
     Route: 048
     Dates: start: 20020101

REACTIONS (1)
  - PROSTATE INFECTION [None]
